FAERS Safety Report 8609999 (Version 2)
Quarter: 2012Q4

REPORT INFORMATION
  Report Type: 
  Country: CN (occurrence: CN)
  Receive Date: 20120612
  Receipt Date: 20120918
  Transmission Date: 20130627
  Serious: Yes (Hospitalization, Other)
  Sender: FDA-Public Use
  Company Number: PHHY2012CN049301

PATIENT
  Sex: Female

DRUGS (1)
  1. ZOMETA [Suspect]
     Indication: METASTASES TO BONE
     Dosage: 4mg/once
     Route: 042

REACTIONS (6)
  - Osteonecrosis of jaw [Unknown]
  - Erythema [Unknown]
  - Swelling [Unknown]
  - Gingival infection [Unknown]
  - Dysphagia [Unknown]
  - Pain [Unknown]
